FAERS Safety Report 26006574 (Version 1)
Quarter: 2025Q4

REPORT INFORMATION
  Report Type: Spontaneous
  Country: EU (occurrence: None)
  Receive Date: 20251106
  Receipt Date: 20251106
  Transmission Date: 20260117
  Serious: Yes (Hospitalization)
  Sender: UCB
  Company Number: None

PATIENT
  Age: 31 Year
  Weight: 53 kg

DRUGS (2)
  1. CIMZIA [Suspect]
     Active Substance: CERTOLIZUMAB PEGOL
     Indication: Ankylosing spondylitis
     Dosage: 200 MILLIGRAM, EV 2 WEEKS(QOW)
  2. Oramellox tbl [Concomitant]
     Indication: Ankylosing spondylitis
     Dosage: 1 TABLET ONCE A DAY IF NECESSARY

REACTIONS (1)
  - Pulmonary tuberculosis [Recovering/Resolving]
